FAERS Safety Report 7095687-1 (Version None)
Quarter: 2010Q4

REPORT INFORMATION
  Report Type: 
  Country: None (occurrence: None)
  Receive Date: 20101111
  Receipt Date: 20101105
  Transmission Date: 20110411
  Serious: Yes (Death, Other)
  Sender: FDA-Public Use
  Company Number: PHHY2010JP75029

PATIENT
  Age: 40 Year
  Sex: Male

DRUGS (2)
  1. SANDOSTATIN [Suspect]
     Indication: NEUROENDOCRINE CARCINOMA
     Route: 058
  2. AVASTIN [Suspect]

REACTIONS (4)
  - DEATH [None]
  - HEPATIC FAILURE [None]
  - METASTASES TO BONE [None]
  - METASTASES TO LIVER [None]
